FAERS Safety Report 9895303 (Version 2)
Quarter: 2014Q1

REPORT INFORMATION
  Report Type: Spontaneous
  Country: US (occurrence: US)
  Receive Date: 20140213
  Receipt Date: 20140213
  Transmission Date: 20141002
  Serious: No
  Sender: FDA-Public Use
  Company Number: US-BRISTOL-MYERS SQUIBB COMPANY-18926246

PATIENT
  Age: 55 Year
  Sex: Female
  Weight: 81.63 kg

DRUGS (3)
  1. ORENCIA FOR INJ [Suspect]
     Indication: RHEUMATOID ARTHRITIS
     Dosage: LAST INF:06MAY2013?RECENT DOSE:29JUL2013
     Route: 042
     Dates: start: 20130206
  2. FEBUXOSTAT [Concomitant]
  3. HYDROXYCHLOROQUINE [Concomitant]

REACTIONS (2)
  - Renal function test abnormal [Unknown]
  - Alopecia [Unknown]
